FAERS Safety Report 23707429 (Version 5)
Quarter: 2024Q2

REPORT INFORMATION
  Report Type: Report from Study
  Country: US (occurrence: US)
  Receive Date: 20240404
  Receipt Date: 20240613
  Transmission Date: 20240715
  Serious: Yes (Hospitalization, Disabling, Other)
  Sender: FDA-Public Use
  Company Number: US-UCBSA-2023000937

PATIENT
  Age: 7 Year
  Sex: Male
  Weight: 32.7 kg

DRUGS (7)
  1. FINTEPLA [Interacting]
     Active Substance: FENFLURAMINE
     Indication: Seizure
     Dosage: 3.5 MILLILITER, 2X/DAY (BID)
     Route: 048
     Dates: start: 20221123
  2. FINTEPLA [Interacting]
     Active Substance: FENFLURAMINE
     Indication: Lennox-Gastaut syndrome
     Dosage: 3.5 MILLILITER, 2X/DAY (BID)
     Route: 048
  3. FINTEPLA [Interacting]
     Active Substance: FENFLURAMINE
     Dosage: 3 MILLILITER, 2X/DAY (BID)
     Route: 048
     Dates: start: 20221213
  4. FINTEPLA [Interacting]
     Active Substance: FENFLURAMINE
     Dosage: 2.5 MILLILITER, 2X/DAY (BID)
     Route: 048
  5. FINTEPLA [Interacting]
     Active Substance: FENFLURAMINE
     Dosage: 2.5 MILLILITER, 2X/DAY (BID)
     Route: 048
     Dates: end: 20240424
  6. CLOBAZAM [Concomitant]
     Active Substance: CLOBAZAM
     Indication: Lennox-Gastaut syndrome
     Dosage: 10 MILLIGRAM, 2X/DAY (BID)
     Route: 048
     Dates: start: 20211103
  7. TOPIRAMATE [Concomitant]
     Active Substance: TOPIRAMATE
     Indication: Lennox-Gastaut syndrome
     Dosage: 50 MILLIGRAM, 3X/DAY (TID)
     Route: 048
     Dates: start: 20221027

REACTIONS (8)
  - Rhinovirus infection [Recovered/Resolved]
  - Tremor [Not Recovered/Not Resolved]
  - Sedation [Not Recovered/Not Resolved]
  - Peripheral swelling [Not Recovered/Not Resolved]
  - Somnolence [Recovered/Resolved]
  - Body temperature decreased [Recovered/Resolved]
  - Hypervigilance [Recovered/Resolved]
  - Drug interaction [Unknown]

NARRATIVE: CASE EVENT DATE: 20230104
